FAERS Safety Report 7726070-0 (Version None)
Quarter: 2011Q3

REPORT INFORMATION
  Report Type: 
  Country: None (occurrence: None)
  Receive Date: 20110831
  Receipt Date: 20110826
  Transmission Date: 20111222
  Serious: Yes (Hospitalization)
  Sender: FDA-Public Use
  Company Number: CO-001942

PATIENT
  Sex: Female

DRUGS (2)
  1. LORATADINE [Concomitant]
  2. NAGLAZYME [Suspect]
     Indication: PRODUCT USED FOR UNKNOWN INDICATION
     Dosage: 15 MG 1X/WEEK, INTRAVENOUS DRIP
     Route: 041
     Dates: start: 20100728

REACTIONS (2)
  - VOMITING [None]
  - VIRAL DIARRHOEA [None]
